FAERS Safety Report 17281723 (Version 1)
Quarter: 2020Q1

REPORT INFORMATION
  Report Type: Spontaneous
  Country: US (occurrence: US)
  Receive Date: 20191227
  Receipt Date: 20191227
  Transmission Date: 20200409
  Serious: No
  Sender: FDA-Public Use
  Company Number: None

PATIENT
  Age: 20 Year
  Sex: Female

DRUGS (1)
  1. HYDROXYPROGEST CAPR SDV 250MG/ML AUROMEDICS PHARMA [Suspect]
     Active Substance: HYDROXYPROGESTERONE CAPROATE
     Route: 030
     Dates: start: 20191115

REACTIONS (4)
  - Headache [None]
  - Maternal drugs affecting foetus [None]
  - Pruritus [None]
  - Maternal exposure timing unspecified [None]

NARRATIVE: CASE EVENT DATE: 201912
